FAERS Safety Report 24004036 (Version 3)
Quarter: 2024Q3

REPORT INFORMATION
  Report Type: Report from Study
  Country: GB (occurrence: GB)
  Receive Date: 20240624
  Receipt Date: 20240812
  Transmission Date: 20241017
  Serious: Yes (Hospitalization)
  Sender: ABBVIE
  Company Number: GB-ABBVIE-5810131

PATIENT
  Age: 55 Year
  Sex: Female

DRUGS (2)
  1. SKYRIZI [Suspect]
     Active Substance: RISANKIZUMAB-RZAA
     Indication: Crohn^s disease
     Dosage: FORM STRENGTH: 360 MILLIGRAM?LAST ADMINISTRATION DATE: 2024
     Route: 058
     Dates: start: 20240417
  2. SKYRIZI [Suspect]
     Active Substance: RISANKIZUMAB-RZAA
     Dosage: 1.00 EA?FORM STRENGTH: 360 MILLIGRAM
     Route: 058
     Dates: start: 20240702

REACTIONS (7)
  - Accident [Unknown]
  - Infection [Unknown]
  - Confusional state [Not Recovered/Not Resolved]
  - Mental disorder [Unknown]
  - Limb injury [Unknown]
  - Fatigue [Unknown]
  - Unevaluable event [Unknown]

NARRATIVE: CASE EVENT DATE: 20240101
